FAERS Safety Report 8576998-7 (Version None)
Quarter: 2012Q3

REPORT INFORMATION
  Report Type: 
  Country: None (occurrence: None)
  Receive Date: 20120807
  Receipt Date: 20120727
  Transmission Date: 20120928
  Serious: Yes (Life-Threatening, Hospitalization)
  Sender: FDA-Public Use
  Company Number: US-BAYER-2012-046877

PATIENT
  Age: 33 Year
  Sex: Female
  Weight: 127 kg

DRUGS (10)
  1. YAZ [Suspect]
     Indication: ACNE
     Dosage: UNK
     Dates: start: 20090318, end: 20100422
  2. DROSPIRENONE AND ETHINYL ESTRADIOL [Suspect]
  3. YAZ [Suspect]
     Indication: PREMENSTRUAL SYNDROME
  4. XYZAL [Concomitant]
  5. LORTAB [Concomitant]
     Dosage: UNK
     Dates: start: 20100401
  6. HYDROCODONE BITARTRATE + ACETAMINOPHEN [Concomitant]
  7. YAZ [Suspect]
  8. DROSPIRENONE AND ETHINYL ESTRADIOL [Suspect]
     Indication: ACNE
     Dosage: UNK
     Dates: start: 20090318, end: 20100422
  9. CEPHALEXIN [Concomitant]
  10. DROSPIRENONE AND ETHINYL ESTRADIOL [Suspect]
     Indication: PREMENSTRUAL SYNDROME

REACTIONS (9)
  - PAIN [None]
  - LOSS OF CONSCIOUSNESS [None]
  - DEPRESSION [None]
  - INJURY [None]
  - MENTAL DISORDER [None]
  - PULMONARY EMBOLISM [None]
  - ANXIETY [None]
  - DEEP VEIN THROMBOSIS [None]
  - ANHEDONIA [None]
